FAERS Safety Report 11457364 (Version 1)
Quarter: 2015Q3

REPORT INFORMATION
  Report Type: Spontaneous
  Country: US (occurrence: None)
  Receive Date: 20150902
  Receipt Date: 20150902
  Transmission Date: 20151125
  Serious: Yes (Hospitalization)
  Sender: FDA-Public Use
  Company Number: 2015HINLIT0721

PATIENT
  Age: 81 Year
  Sex: Male

DRUGS (9)
  1. DARUNAVIR [Concomitant]
     Active Substance: DARUNAVIR
  2. RITONAVIR (RITONAVIR) [Suspect]
     Active Substance: RITONAVIR
     Indication: HIV INFECTION
  3. TENOFOVIR (TENOFOVIR) UNKNOWN [Suspect]
     Active Substance: TENOFOVIR
     Indication: HIV INFECTION
  4. VALSARTAN. [Concomitant]
     Active Substance: VALSARTAN
  5. EMTRICITABINE [Concomitant]
     Active Substance: EMTRICITABINE
  6. TESTOSTERONE. [Concomitant]
     Active Substance: TESTOSTERONE
  7. ATORVASTATIN [Concomitant]
     Active Substance: ATORVASTATIN
  8. HYDROCHLOROTHIAZIDE (HYDROCHLOROTHIAZIDE) [Suspect]
     Active Substance: HYDROCHLOROTHIAZIDE
     Indication: PRODUCT USED FOR UNKNOWN INDICATION
  9. ACYCLOVIR. [Concomitant]
     Active Substance: ACYCLOVIR

REACTIONS (1)
  - Renal tubular necrosis [None]
